FAERS Safety Report 14884138 (Version 1)
Quarter: 2018Q2

REPORT INFORMATION
  Report Type: Spontaneous
  Country: JP (occurrence: JP)
  Receive Date: 20180511
  Receipt Date: 20180511
  Transmission Date: 20180711
  Serious: Yes (Other)
  Sender: FDA-Public Use
  Company Number: JP-SHIRE-JP201817999

PATIENT

DRUGS (11)
  1. TRIMEBUTINE MALEATE [Concomitant]
     Active Substance: TRIMEBUTINE MALEATE
     Indication: COLITIS ULCERATIVE
  2. PENTASA [Concomitant]
     Active Substance: MESALAMINE
     Indication: PRODUCT USED FOR UNKNOWN INDICATION
  3. BLOPRESS [Concomitant]
     Active Substance: CANDESARTAN CILEXETIL
     Indication: HYPERTENSION
  4. LIALDA [Suspect]
     Active Substance: MESALAMINE
     Indication: COLITIS ULCERATIVE
     Dosage: 1200 MG, 4X/DAY:QID
     Route: 048
     Dates: start: 20170225, end: 20170423
  5. LIALDA [Suspect]
     Active Substance: MESALAMINE
     Dosage: 1200 MG, 2X/DAY:BID
     Route: 048
     Dates: start: 20170424, end: 20170506
  6. ONEALFA [Concomitant]
     Active Substance: ALFACALCIDOL
     Indication: OSTEOPOROSIS
  7. CONIEL [Concomitant]
     Active Substance: BENIDIPINE HYDROCHLORIDE
     Indication: HYPERTENSION
  8. DAIKENCHUTO [Concomitant]
     Active Substance: HERBALS
     Indication: INTESTINAL OBSTRUCTION
  9. LIALDA [Suspect]
     Active Substance: MESALAMINE
     Dosage: 1200 MG, 2X/DAY:BID
     Route: 048
     Dates: start: 20170522, end: 20170611
  10. PLETAAL [Concomitant]
     Active Substance: CILOSTAZOL
     Indication: LACUNAR INFARCTION
  11. THYRADIN [Concomitant]
     Active Substance: LEVOTHYROXINE
     Indication: HYPOTHYROIDISM

REACTIONS (3)
  - Bradycardia [Recovered/Resolved]
  - Ventricular extrasystoles [Recovered/Resolved]
  - Nausea [Recovered/Resolved]

NARRATIVE: CASE EVENT DATE: 20170502
